FAERS Safety Report 21363540 (Version 2)
Quarter: 2022Q4

REPORT INFORMATION
  Report Type: Spontaneous
  Country: US (occurrence: US)
  Receive Date: 20220922
  Receipt Date: 20221128
  Transmission Date: 20230113
  Serious: No
  Sender: FDA-Public Use
  Company Number: US-BRISTOL-MYERS SQUIBB COMPANY-2022-109995

PATIENT
  Age: 41 Year
  Sex: Male

DRUGS (2)
  1. ZEPOSIA [Suspect]
     Active Substance: OZANIMOD HYDROCHLORIDE
     Indication: Colitis ulcerative
     Route: 048
     Dates: start: 202101, end: 202207
  2. VIBERZI [Concomitant]
     Active Substance: ELUXADOLINE
     Indication: Irritable bowel syndrome
     Route: 048
     Dates: start: 20220718

REACTIONS (2)
  - Drug ineffective [Unknown]
  - Colitis ulcerative [Unknown]
